FAERS Safety Report 8093040-5 (Version None)
Quarter: 2012Q1

REPORT INFORMATION
  Report Type: 
  Country: None (occurrence: None)
  Receive Date: 20120128
  Receipt Date: 20110902
  Transmission Date: 20120608
  Serious: No
  Sender: FDA-Public Use
  Company Number: US-ABBOTT-10P-163-0665422-00

PATIENT
  Sex: Female

DRUGS (4)
  1. ASACOL [Concomitant]
     Indication: PRODUCT USED FOR UNKNOWN INDICATION
  2. PLAQUENIL [Concomitant]
     Indication: PRODUCT USED FOR UNKNOWN INDICATION
  3. HUMIRA [Suspect]
     Indication: CROHN'S DISEASE
     Dates: start: 20100801
  4. IMURAN [Concomitant]
     Indication: PRODUCT USED FOR UNKNOWN INDICATION

REACTIONS (10)
  - INJECTION SITE ERYTHEMA [None]
  - CROHN'S DISEASE [None]
  - STOMATITIS [None]
  - ARTHRALGIA [None]
  - RASH [None]
  - BURNING SENSATION [None]
  - INJECTION SITE PRURITUS [None]
  - INJECTION SITE PAIN [None]
  - DRUG EFFECT DECREASED [None]
  - FATIGUE [None]
